FAERS Safety Report 5858635-5 (Version None)
Quarter: 2008Q3

REPORT INFORMATION
  Report Type: 
  Country: None (occurrence: None)
  Receive Date: 20080826
  Receipt Date: 20080819
  Transmission Date: 20090109
  Serious: Yes (Disabling)
  Sender: FDA-Public Use
  Company Number: GB-JNJCH-2008021556

PATIENT
  Age: 36 Year
  Sex: Female

DRUGS (4)
  1. CETIRIZINE HYDROCHLORIDE [Suspect]
     Indication: SEASONAL ALLERGY
     Dosage: TEXT:10 MG 1/ 1DAYS
     Route: 048
     Dates: start: 20080705, end: 20080707
  2. FEXOFENADINE [Concomitant]
     Indication: SEASONAL ALLERGY
     Dosage: TEXT:120 MG 1 /1DAYS
     Route: 048
  3. FRISIUM [Concomitant]
     Indication: DRUG USE FOR UNKNOWN INDICATION
     Dosage: TEXT:10 MG 2 /1DAYS
     Route: 048
  4. KEPPRA [Concomitant]
     Indication: EPILEPSY
     Dosage: TEXT:1000MG 3 /1DAYS
     Route: 048

REACTIONS (6)
  - AURA [None]
  - CRYING [None]
  - DEPRESSION [None]
  - DIZZINESS [None]
  - DYSTONIA [None]
  - MALAISE [None]
